FAERS Safety Report 4963491-3 (Version None)
Quarter: 2006Q1

REPORT INFORMATION
  Report Type: 
  Country: None (occurrence: None)
  Receive Date: 20060329
  Receipt Date: 20060210
  Transmission Date: 20060701
  Serious: Yes (Hospitalization)
  Sender: FDA-Public Use
  Company Number: 2006-138590-NL

PATIENT
  Age: 81 Year
  Sex: Male
  Weight: 78.5 kg

DRUGS (3)
  1. TICE BCG [Suspect]
     Indication: CARCINOMA IN SITU OF BLADDER
     Dosage: CFU INTRAVESICAL, 6 INSTILLATIONS
     Route: 043
     Dates: start: 20050101, end: 20050101
  2. LOTENSIN [Concomitant]
  3. ZOCORD [Concomitant]

REACTIONS (3)
  - INTERSTITIAL LUNG DISEASE [None]
  - PNEUMONIA [None]
  - TUBERCULOSIS [None]
